FAERS Safety Report 4548484-2 (Version None)
Quarter: 2005Q1

REPORT INFORMATION
  Report Type: 
  Country: None (occurrence: None)
  Receive Date: 20050110
  Receipt Date: 20050103
  Transmission Date: 20050727
  Serious: Yes (Other)
  Sender: FDA-Public Use
  Company Number: US-GLAXOSMITHKLINE-A0538912A

PATIENT
  Sex: Male

DRUGS (1)
  1. PAXIL [Suspect]
     Indication: DEPRESSION
     Route: 048

REACTIONS (5)
  - DEPERSONALISATION [None]
  - DISSOCIATION [None]
  - EMOTIONAL DISORDER [None]
  - ILLUSION [None]
  - SUICIDAL IDEATION [None]
